FAERS Safety Report 5750749-3 (Version None)
Quarter: 2008Q2

REPORT INFORMATION
  Report Type: 
  Country: None (occurrence: None)
  Receive Date: 20080523
  Receipt Date: 20080523
  Transmission Date: 20081010
  Serious: Yes (Disabling)
  Sender: FDA-Public Use
  Company Number: None

PATIENT
  Sex: Female
  Weight: 68.9467 kg

DRUGS (4)
  1. ZETIA [Suspect]
     Indication: BLOOD CHOLESTEROL INCREASED
     Dosage: 10MG 1 DAILY  OVER SEVERAL YEARS
     Dates: end: 20070101
  2. ZOCOR [Suspect]
  3. LIPITOR [Suspect]
  4. CRESTOR [Suspect]

REACTIONS (2)
  - MUSCLE SPASMS [None]
  - NO THERAPEUTIC RESPONSE [None]
